FAERS Safety Report 6432166-6 (Version None)
Quarter: 2009Q4

REPORT INFORMATION
  Report Type: 
  Country: None (occurrence: None)
  Receive Date: 20091109
  Receipt Date: 20091027
  Transmission Date: 20100525
  Serious: Yes (Other)
  Sender: FDA-Public Use
  Company Number: US-BAYER-200937499NA

PATIENT
  Sex: Female

DRUGS (2)
  1. YAZ [Suspect]
     Dosage: TOTAL DAILY DOSE: 1 DF
     Route: 048
  2. YASMIN [Suspect]

REACTIONS (2)
  - INJURY [None]
  - PULMONARY EMBOLISM [None]
